FAERS Safety Report 7161848-6 (Version None)
Quarter: 2010Q4

REPORT INFORMATION
  Report Type: 
  Country: None (occurrence: None)
  Receive Date: 20101215
  Receipt Date: 20100707
  Transmission Date: 20110411
  Serious: Yes (Hospitalization, Other)
  Sender: FDA-Public Use
  Company Number: FR-PFIZER INC-2010084499

PATIENT
  Age: 69 Year
  Sex: Male

DRUGS (1)
  1. LYRICA [Suspect]
     Dosage: 600 MG, PER DAY
     Dates: end: 20100701

REACTIONS (5)
  - BLOOD CREATININE DECREASED [None]
  - MYOCLONUS [None]
  - OVERDOSE [None]
  - POISONING [None]
  - SOMNOLENCE [None]
